FAERS Safety Report 7588789 (Version 2)
Quarter: 2013Q4

REPORT INFORMATION
  Report Type: Spontaneous
  Country: US (occurrence: US)
  Receive Date: 20100916
  Receipt Date: 20131119
  Transmission Date: 20140711
  Serious: Yes (Hospitalization, Other)
  Sender: FDA-Public Use
  Company Number: US-BAYER-201033416NA

PATIENT
  Age: 34 Year
  Sex: Female

DRUGS (6)
  1. YASMIN [Suspect]
     Indication: MENORRHAGIA
     Route: 065
     Dates: start: 200403
  2. YAZ [Suspect]
     Route: 065
     Dates: start: 200403
  3. OCELLA [Suspect]
     Route: 065
     Dates: start: 200403
  4. CIPRO [Concomitant]
     Dosage: 250 MG, BID
  5. AMPICILLIN [Concomitant]
     Dosage: 500 MG, EVERY 6 HOURS
  6. SPIRONOLACTONE [Concomitant]

REACTIONS (2)
  - Pulmonary embolism [Recovered/Resolved]
  - Deep vein thrombosis [Unknown]
